FAERS Safety Report 20657782 (Version 3)
Quarter: 2022Q2

REPORT INFORMATION
  Report Type: Report from Study
  Country: US (occurrence: US)
  Receive Date: 20220331
  Receipt Date: 20220422
  Transmission Date: 20220721
  Serious: Yes (Other)
  Sender: FDA-Public Use
  Company Number: US-NOVARTISTESTPH-NVSC2022US072444

PATIENT
  Sex: Male

DRUGS (1)
  1. ENTRESTO [Suspect]
     Active Substance: SACUBITRIL\VALSARTAN
     Indication: Product used for unknown indication
     Dosage: 1 DOSAGE FORM, BID(49/51 MG)
     Route: 048

REACTIONS (5)
  - Loss of consciousness [Unknown]
  - Dizziness [Unknown]
  - Fall [Unknown]
  - Limb injury [Unknown]
  - Memory impairment [Unknown]
